FAERS Safety Report 14615282 (Version 1)
Quarter: 2018Q1

REPORT INFORMATION
  Report Type: Spontaneous
  Country: FR (occurrence: FR)
  Receive Date: 20180308
  Receipt Date: 20180308
  Transmission Date: 20180509
  Serious: Yes (Other)
  Sender: FDA-Public Use
  Company Number: FR-MERCK KGAA-2043352

PATIENT
  Age: 56 Year
  Sex: Female

DRUGS (1)
  1. NOVOTHYROX [Suspect]
     Active Substance: LEVOTHYROXINE SODIUM
     Indication: HYPOTHYROIDISM

REACTIONS (15)
  - Impaired work ability [Recovering/Resolving]
  - Family stress [Recovering/Resolving]
  - Headache [Recovering/Resolving]
  - Insomnia [Recovering/Resolving]
  - Fatigue [Recovering/Resolving]
  - Neck pain [Recovering/Resolving]
  - Alopecia [Recovering/Resolving]
  - Irritability [Recovering/Resolving]
  - Mood swings [Recovering/Resolving]
  - Impaired driving ability [Recovering/Resolving]
  - Asthenia [Recovering/Resolving]
  - Social avoidant behaviour [Recovering/Resolving]
  - Job dissatisfaction [None]
  - Blood thyroid stimulating hormone decreased [Recovering/Resolving]
  - Blood parathyroid hormone increased [Recovering/Resolving]

NARRATIVE: CASE EVENT DATE: 20170225
